FAERS Safety Report 10906894 (Version 1)
Quarter: 2015Q1

REPORT INFORMATION
  Report Type: Spontaneous
  Country: US (occurrence: None)
  Receive Date: 20150309
  Receipt Date: 20150309
  Transmission Date: 20150721
  Serious: Yes (Life-Threatening, Other)
  Sender: FDA-Public Use
  Company Number: None

PATIENT
  Age: 49 Year
  Sex: Female
  Weight: 74.84 kg

DRUGS (21)
  1. XANAX [Concomitant]
     Active Substance: ALPRAZOLAM
  2. MINOCYCLINE [Concomitant]
     Active Substance: MINOCYCLINE\MINOCYCLINE HYDROCHLORIDE
  3. ZOLOFT [Concomitant]
     Active Substance: SERTRALINE HYDROCHLORIDE
  4. MIRALAX [Concomitant]
     Active Substance: POLYETHYLENE GLYCOL 3350
  5. FLEXERIL [Concomitant]
     Active Substance: CYCLOBENZAPRINE HYDROCHLORIDE
  6. BENADRYL [Concomitant]
     Active Substance: DIPHENHYDRAMINE HYDROCHLORIDE
  7. SEROQUEL [Concomitant]
     Active Substance: QUETIAPINE FUMARATE
  8. PROMETHAZINE [Concomitant]
     Active Substance: PROMETHAZINE\PROMETHAZINE HYDROCHLORIDE
  9. VITAMIN D [Concomitant]
     Active Substance: CHOLECALCIFEROL
  10. VITAMIN B SUPPLEMENT [Concomitant]
  11. DUCISATE SODIUM [Concomitant]
  12. FENTANYL. [Concomitant]
     Active Substance: FENTANYL
  13. LAMICTAL [Concomitant]
     Active Substance: LAMOTRIGINE
  14. CELESTINE [Concomitant]
     Active Substance: LORATADINE
  15. TRAZODONE [Concomitant]
     Active Substance: TRAZODONE HYDROCHLORIDE
  16. MILK OF MAGNESIA [Concomitant]
     Active Substance: MAGNESIUM HYDROXIDE
  17. FENTANYL. [Suspect]
     Active Substance: FENTANYL
     Indication: PAIN MANAGEMENT
     Dosage: 75 MCG/HR?EVERY 48 HOURS?APPLIED AS MEDICATED PATCH TO SKIN??1 1/2 DAYS
  18. TYLENOL [Concomitant]
     Active Substance: ACETAMINOPHEN
  19. OXYCODONE [Concomitant]
     Active Substance: OXYCODONE
  20. MULTIVITAMIN [Concomitant]
     Active Substance: VITAMINS
  21. IMODIUM [Concomitant]
     Active Substance: LOPERAMIDE HYDROCHLORIDE

REACTIONS (9)
  - Product adhesion issue [None]
  - Application site pruritus [None]
  - Rash [None]
  - Application site erythema [None]
  - Product quality issue [None]
  - Application site discharge [None]
  - Wrong technique in drug usage process [None]
  - Somnolence [None]
  - Device allergy [None]

NARRATIVE: CASE EVENT DATE: 20150107
